FAERS Safety Report 24247984 (Version 1)
Quarter: 2024Q3

REPORT INFORMATION
  Report Type: Spontaneous
  Country: US (occurrence: None)
  Receive Date: 20240826
  Receipt Date: 20240826
  Transmission Date: 20241016
  Serious: No
  Sender: ASTRAZENECA
  Company Number: 2024A191508

PATIENT
  Sex: Male

DRUGS (1)
  1. WAINUA [Suspect]
     Active Substance: EPLONTERSEN
     Indication: Acquired ATTR amyloidosis
     Route: 058
     Dates: start: 20240329, end: 20240719

REACTIONS (2)
  - Neuropathy peripheral [Unknown]
  - Blood albumin increased [Unknown]
